FAERS Safety Report 24964500 (Version 1)
Quarter: 2025Q1

REPORT INFORMATION
  Report Type: Spontaneous
  Country: JP (occurrence: JP)
  Receive Date: 20250213
  Receipt Date: 20250213
  Transmission Date: 20250409
  Serious: Yes (Life-Threatening, Hospitalization, Other)
  Sender: BIOVITRUM
  Company Number: JP-ASTRAZENECA-250013221_070810_P_1

PATIENT
  Age: 59 Day
  Sex: Female
  Weight: 2 kg

DRUGS (1)
  1. SYNAGIS [Suspect]
     Active Substance: PALIVIZUMAB
     Indication: Antiviral prophylaxis
     Route: 030

REACTIONS (2)
  - Respiratory syncytial virus bronchiolitis [Unknown]
  - Respiratory failure [Unknown]
